FAERS Safety Report 8372871-8 (Version None)
Quarter: 2012Q2

REPORT INFORMATION
  Report Type: 
  Country: None (occurrence: None)
  Receive Date: 20120521
  Receipt Date: 20120515
  Transmission Date: 20120825
  Serious: Yes (Other)
  Sender: FDA-Public Use
  Company Number: BR-B.I. PHARMACEUTICALS,INC./RIDGEFIELD-2012-BR-00503BR

PATIENT
  Sex: Female

DRUGS (1)
  1. CLONIDINE HYDROCHLORIDE [Suspect]
     Indication: HYPERTENSION
     Route: 048

REACTIONS (3)
  - HYPERTENSIVE CRISIS [None]
  - DYSGEUSIA [None]
  - DRUG INEFFECTIVE [None]
